FAERS Safety Report 16956481 (Version 9)
Quarter: 2020Q1

REPORT INFORMATION
  Report Type: Spontaneous
  Country: ES (occurrence: ES)
  Receive Date: 20191024
  Receipt Date: 20200203
  Transmission Date: 20200409
  Serious: Yes (Hospitalization)
  Sender: FDA-Public Use
  Company Number: ES-PFIZER INC-2019423244

PATIENT
  Age: 38 Year
  Sex: Female
  Weight: 52.1 kg

DRUGS (17)
  1. METHYLPREDNISOLONE SODIUM SUCCINATE. [Suspect]
     Active Substance: METHYLPREDNISOLONE SODIUM SUCCINATE
     Dosage: UNK
     Route: 042
     Dates: end: 201909
  2. ACICLOVIR [Suspect]
     Active Substance: ACYCLOVIR
     Dosage: 800 MG, UNK
     Route: 048
     Dates: end: 20190927
  3. FOLIC ACID. [Concomitant]
     Active Substance: FOLIC ACID
     Dosage: 15 MG, DAILY
  4. MEROPENEM. [Concomitant]
     Active Substance: MEROPENEM
     Dosage: 1 G, 3X/DAY (EACH 8H)
     Dates: start: 20191014
  5. CRESEMBA [Suspect]
     Active Substance: ISAVUCONAZONIUM SULFATE
     Dosage: 200 MG, DAILY (EACH 24H)
     Route: 042
     Dates: start: 20190922, end: 20191003
  6. ANAKINRA [Concomitant]
     Active Substance: ANAKINRA
     Dosage: 100 MG, DAILY
  7. BISACODYL. [Concomitant]
     Active Substance: BISACODYL
     Dosage: 5 MG, DAILY
     Dates: end: 20191001
  8. GABAPENTIN. [Concomitant]
     Active Substance: GABAPENTIN
     Dosage: 30 MG, 3X/DAY (EACH 8H)
  9. TINZAPARIN [Concomitant]
     Active Substance: TINZAPARIN
     Dosage: 4500 IU, DAILY
     Dates: end: 20190923
  10. TAPENTADOL [Concomitant]
     Active Substance: TAPENTADOL
     Dosage: 150 MG, 2X/DAY (EACH 12H)
  11. MORPHINE [Concomitant]
     Active Substance: MORPHINE
     Dosage: UNK, AS NEEDED
  12. OXYCODONE [Concomitant]
     Active Substance: OXYCODONE
     Dosage: 12 MG, EACH 4H AND IF NEEDED
  13. CRESEMBA [Suspect]
     Active Substance: ISAVUCONAZONIUM SULFATE
     Indication: ASPERGILLUS INFECTION
     Dosage: 200 MG, 3X/DAY (EACH 8H)
     Dates: start: 20190921, end: 20190922
  14. VFEND [Suspect]
     Active Substance: VORICONAZOLE
     Dosage: 500 MG/12 HOURS
     Route: 042
     Dates: start: 2019, end: 20190920
  15. VFEND [Suspect]
     Active Substance: VORICONAZOLE
     Indication: ASPERGILLUS INFECTION
     Dosage: 200 MG/ 12 HOURS
     Route: 042
     Dates: start: 20190702, end: 2019
  16. COTRIMOXAZOL [Suspect]
     Active Substance: SULFAMETHOXAZOLE\TRIMETHOPRIM
     Dosage: UNK
     Dates: end: 201909
  17. ENALAPRIL [Concomitant]
     Active Substance: ENALAPRIL
     Dosage: 10 MG, DAILY

REACTIONS (4)
  - Off label use [Unknown]
  - Gastrointestinal toxicity [Recovered/Resolved]
  - Nausea [Recovered/Resolved]
  - Vomiting [Recovered/Resolved]

NARRATIVE: CASE EVENT DATE: 20190923
